FAERS Safety Report 15808515 (Version 1)
Quarter: 2019Q1

REPORT INFORMATION
  Report Type: Report from Study
  Country: US (occurrence: US)
  Receive Date: 20190110
  Receipt Date: 20190110
  Transmission Date: 20190417
  Serious: Yes (Hospitalization)
  Sender: FDA-Public Use
  Company Number: US-PFIZER INC-2019005593

PATIENT
  Age: 42 Year
  Sex: Male

DRUGS (13)
  1. CYCLOPHOSPHAMIDE. [Suspect]
     Active Substance: CYCLOPHOSPHAMIDE
     Indication: ACUTE LYMPHOCYTIC LEUKAEMIA
     Dosage: 150 MG/M2, REGIMEN A: OVER 3 HOURS TWICE A DAY ON DAYS 1-3
     Route: 042
  2. RITUXIMAB. [Suspect]
     Active Substance: RITUXIMAB
     Indication: ACUTE LYMPHOCYTIC LEUKAEMIA
     Dosage: 375 MG/M2, REGIMEN A: ON DAY 2 AND DAY 8 (CYCLES 1 AND 3 ONLY)
     Route: 042
  3. PEGFILGRASTIM [Suspect]
     Active Substance: PEGFILGRASTIM
     Indication: ACUTE LYMPHOCYTIC LEUKAEMIA
     Dosage: REGIMEN A: 6 MG SUBQ(OR FILGRASTIM 5-10 MCG/KG DAILY) ON DAY4 UNTIL RECOVERY OF GRANULOCYTE COUNT
     Route: 058
  4. INOTUZUMAB OZOGAMICIN [Suspect]
     Active Substance: INOTUZUMAB OZOGAMICIN
     Dosage: 0.3 MG/M2, REGIMEN B: IV ON DAY 2 OR 3 (CYCLES 2 AND 4 ONLY)
     Route: 042
  5. MESNA. [Suspect]
     Active Substance: MESNA
     Indication: ACUTE LYMPHOCYTIC LEUKAEMIA
     Dosage: 300 MG/M2, REGIMEN A: DAILY OVER 24 HOURS FOR 3 DAYS ON DAYS 1-3
     Route: 042
  6. RITUXIMAB. [Suspect]
     Active Substance: RITUXIMAB
     Dosage: 375 MG/M2, REGIMEN B:ON DAY 2 AND 8 OF CYCLES 2 AND 4
     Route: 042
  7. CYTARABINE. [Suspect]
     Active Substance: CYTARABINE
     Indication: ACUTE LYMPHOCYTIC LEUKAEMIA
     Dosage: 500 MG/M2, REGIMEN B: OVER 3 HOURS TWICE A DAY X 4 DOSES ON DAYS 2 AND 3
     Route: 042
  8. VINCRISTINE SULFATE. [Suspect]
     Active Substance: VINCRISTINE SULFATE
     Indication: ACUTE LYMPHOCYTIC LEUKAEMIA
     Dosage: 2 MG, REGIMEN A: IV DAY 1 AND 8
     Route: 042
  9. METHOTREXATE SODIUM. [Suspect]
     Active Substance: METHOTREXATE SODIUM
     Dosage: 200 MG/M2, REGIMEN B: INFUSION OVER 22 HOURS ON DAY 1
     Route: 042
  10. DEXAMETHASONE PHOSPHATE [Suspect]
     Active Substance: DEXAMETHASONE PHOSPHATE
     Indication: ACUTE LYMPHOCYTIC LEUKAEMIA
     Dosage: 20 MG, REGIMEN A: DAILY FOR 4 DAYS ON DAYS 1-4 AND DAYS 11-14
     Route: 042
  11. METHOTREXATE SODIUM. [Suspect]
     Active Substance: METHOTREXATE SODIUM
     Indication: ACUTE LYMPHOCYTIC LEUKAEMIA
     Dosage: 50 MG/M2, REGIMEN B: 50 MG/M2 IV OVER 2HRS ON DAY 1
     Route: 042
  12. INOTUZUMAB OZOGAMICIN [Suspect]
     Active Substance: INOTUZUMAB OZOGAMICIN
     Indication: ACUTE LYMPHOCYTIC LEUKAEMIA
     Dosage: 0.3 MG/M2, REGIMEN A: IV OVER 1 HOUR ON DAY 3
     Route: 042
     Dates: start: 20181102
  13. PEGFILGRASTIM [Suspect]
     Active Substance: PEGFILGRASTIM
     Dosage: REGIMEN B: 6 MG SUBQ (OR FILGRASTIM 5-10 MCG/KG DAILY) ON DAY4 UNTIL RECOVERY OF GRANULOCYTE COUNT
     Route: 058

REACTIONS (1)
  - Febrile neutropenia [Recovered/Resolved]

NARRATIVE: CASE EVENT DATE: 20181207
